FAERS Safety Report 8003693-5 (Version None)
Quarter: 2011Q4

REPORT INFORMATION
  Report Type: 
  Country: None (occurrence: None)
  Receive Date: 20111222
  Receipt Date: 20111219
  Transmission Date: 20120403
  Serious: Yes (Hospitalization)
  Sender: FDA-Public Use
  Company Number: DE-ABBOTT-11P-062-0884651-00

PATIENT
  Age: 60 Year
  Sex: Female

DRUGS (6)
  1. DICLOFENAC SODIUM [Concomitant]
     Indication: PRODUCT USED FOR UNKNOWN INDICATION
     Dates: start: 20050401
  2. LORZAAR PROTECT [Concomitant]
     Indication: PRODUCT USED FOR UNKNOWN INDICATION
     Dosage: 50
     Dates: start: 20080201
  3. PANTOPRAZOLE [Concomitant]
     Indication: PRODUCT USED FOR UNKNOWN INDICATION
     Dates: start: 20071001
  4. METHOTREXATE [Suspect]
     Indication: RHEUMATOID ARTHRITIS
     Dates: start: 20021101
  5. DEKRISTOL [Concomitant]
     Indication: PRODUCT USED FOR UNKNOWN INDICATION
     Dosage: 20.000
     Dates: start: 20101201
  6. HUMIRA [Suspect]
     Indication: RHEUMATOID ARTHRITIS
     Route: 058
     Dates: start: 20050401

REACTIONS (3)
  - TENDON RUPTURE [None]
  - ULCER [None]
  - IMPAIRED HEALING [None]
